FAERS Safety Report 5734752-5 (Version None)
Quarter: 2008Q2

REPORT INFORMATION
  Report Type: 
  Country: None (occurrence: None)
  Receive Date: 20080508
  Receipt Date: 20080508
  Transmission Date: 20081010
  Serious: Yes (Other)
  Sender: FDA-Public Use
  Company Number: None

PATIENT
  Age: 72 Year
  Sex: Male
  Weight: 95.2554 kg

DRUGS (1)
  1. DIGITEK 0.25 MG MYLAN BERTEK [Suspect]
     Indication: ATRIAL FIBRILLATION
     Dosage: 1 TABLET DAILY PO
     Route: 048
     Dates: start: 19900101, end: 20080505

REACTIONS (2)
  - PALPITATIONS [None]
  - PHARMACEUTICAL PRODUCT COMPLAINT [None]
